FAERS Safety Report 22060541 (Version 1)
Quarter: 2023Q1

REPORT INFORMATION
  Report Type: Spontaneous
  Country: CA (occurrence: None)
  Receive Date: 20230303
  Receipt Date: 20230303
  Transmission Date: 20230418
  Serious: Yes (Other)
  Sender: FDA-Public Use
  Company Number: 2023A049699

PATIENT
  Age: 27097 Day
  Sex: Female

DRUGS (3)
  1. SYMBICORT [Suspect]
     Active Substance: BUDESONIDE\FORMOTEROL FUMARATE DIHYDRATE
     Indication: Asthma
     Dosage: 200UG/INHAL TWO TIMES A DAY
     Route: 055
     Dates: start: 2017
  2. ALBUTEROL [Concomitant]
     Active Substance: ALBUTEROL
     Indication: Asthma
     Dosage: 2PUFFS QID
     Dates: start: 2017
  3. COMBIVENT [Concomitant]
     Active Substance: ALBUTEROL SULFATE\IPRATROPIUM BROMIDE
     Indication: Asthma
     Dates: start: 2017

REACTIONS (6)
  - Dyspnoea [Recovered/Resolved]
  - Drug ineffective [Unknown]
  - Drug dose omission by device [Unknown]
  - Device use issue [Unknown]
  - Product storage error [Unknown]
  - Device defective [Unknown]

NARRATIVE: CASE EVENT DATE: 20230104
